FAERS Safety Report 9711640 (Version 1)
Quarter: 2013Q4

REPORT INFORMATION
  Report Type: Spontaneous
  Country: US (occurrence: US)
  Receive Date: 20131126
  Receipt Date: 20131126
  Transmission Date: 20140711
  Serious: No
  Sender: FDA-Public Use
  Company Number: US-BRISTOL-MYERS SQUIBB COMPANY-18789867

PATIENT
  Age: 44 Year
  Sex: Male
  Weight: 117.91 kg

DRUGS (1)
  1. BYDUREON [Suspect]
     Dosage: THERAPY ON 10APR13
     Dates: start: 20130327

REACTIONS (9)
  - Diarrhoea [Recovering/Resolving]
  - Dehydration [Unknown]
  - Nausea [Unknown]
  - Dyspepsia [Recovered/Resolved]
  - Injection site bruising [Unknown]
  - Abdominal discomfort [Unknown]
  - Eructation [Unknown]
  - Headache [Unknown]
  - Fatigue [Unknown]
